FAERS Safety Report 9672464 (Version 2)
Quarter: 2013Q4

REPORT INFORMATION
  Report Type: Spontaneous
  Country: US (occurrence: US)
  Receive Date: 20131106
  Receipt Date: 20131121
  Transmission Date: 20140711
  Serious: Yes (Hospitalization)
  Sender: FDA-Public Use
  Company Number: US-PFIZER INC-2013307788

PATIENT
  Age: 12 Year
  Sex: Male

DRUGS (4)
  1. RIFAMPIN [Suspect]
     Indication: STAPHYLOCOCCAL INFECTION
     Dosage: UNK
  2. CEFOTAXIME [Concomitant]
     Indication: ANTIBIOTIC THERAPY
  3. VANCOMYCIN [Concomitant]
     Indication: ANTIBIOTIC THERAPY
  4. METRONIDAZOLE [Concomitant]
     Indication: ANTIBIOTIC THERAPY

REACTIONS (1)
  - Drug resistance [Recovered/Resolved]
